FAERS Safety Report 11190526 (Version 2)
Quarter: 2015Q3

REPORT INFORMATION
  Report Type: Report from Study
  Country: FR (occurrence: FR)
  Receive Date: 20150615
  Receipt Date: 20150707
  Transmission Date: 20151125
  Serious: Yes (Hospitalization)
  Sender: FDA-Public Use
  Company Number: FR-GLAXOSMITHKLINE-FR2015GSK068102

PATIENT
  Age: 48 Year
  Sex: Female
  Weight: 55 kg

DRUGS (11)
  1. GEMCITABINE [Suspect]
     Active Substance: GEMCITABINE\GEMCITABINE HYDROCHLORIDE
     Indication: SOFT TISSUE SARCOMA
     Dosage: 1510 MG, UNK
     Route: 042
     Dates: start: 20150330
  2. DIFFU K [Concomitant]
     Active Substance: POTASSIUM CHLORIDE
  3. OXYNORMORO [Concomitant]
     Active Substance: OXYCODONE
  4. PRIMPERAN [Concomitant]
     Active Substance: METOCLOPRAMIDE HYDROCHLORIDE
  5. FUNGIZONE [Concomitant]
     Active Substance: AMPHOTERICIN B
  6. SOLUPRED [Concomitant]
     Active Substance: PREDNISOLONE
     Dosage: UNK
  7. PARACETAMOL [Concomitant]
     Active Substance: ACETAMINOPHEN
  8. OXYCONTIN [Concomitant]
     Active Substance: OXYCODONE HYDROCHLORIDE
     Dosage: UNK
  9. ACUPAN [Concomitant]
     Active Substance: NEFOPAM HYDROCHLORIDE
  10. PAZOPANIB [Suspect]
     Active Substance: PAZOPANIB
     Dosage: UNK
     Dates: start: 20150422
  11. PAZOPANIB [Suspect]
     Active Substance: PAZOPANIB
     Indication: SOFT TISSUE SARCOMA
     Dosage: 800 MG, QD
     Route: 048
     Dates: start: 20150330, end: 20150415

REACTIONS (4)
  - Asthenia [Unknown]
  - Anxiety [Unknown]
  - General physical health deterioration [Unknown]
  - Thrombocytopenia [Not Recovered/Not Resolved]

NARRATIVE: CASE EVENT DATE: 20150414
